FAERS Safety Report 4869441-2 (Version None)
Quarter: 2005Q4

REPORT INFORMATION
  Report Type: 
  Country: None (occurrence: None)
  Receive Date: 20051230
  Receipt Date: 20050311
  Transmission Date: 20060501
  Serious: Yes (Hospitalization)
  Sender: FDA-Public Use
  Company Number: US-MERCK-0503USA02655

PATIENT
  Age: 63 Year
  Sex: Female
  Weight: 77 kg

DRUGS (29)
  1. ATROPINE SULFATE AND DIPHENOXYLATE HYDROCHLORIDE [Concomitant]
     Route: 065
  2. CIPRO [Concomitant]
     Route: 065
  3. VIOXX [Suspect]
     Indication: OSTEOARTHRITIS
     Route: 048
     Dates: start: 20011001, end: 20040901
  4. VIOXX [Suspect]
     Route: 048
     Dates: start: 20011001, end: 20040901
  5. VIOXX [Suspect]
     Route: 048
     Dates: start: 20011001, end: 20040901
  6. VIOXX [Suspect]
     Indication: BACK PAIN
     Route: 048
     Dates: start: 20011001, end: 20040901
  7. VIOXX [Suspect]
     Route: 048
     Dates: start: 20011001, end: 20040901
  8. VIOXX [Suspect]
     Route: 048
     Dates: start: 20011001, end: 20040901
  9. SYNTHROID [Concomitant]
     Route: 065
  10. NASACORT AQ [Concomitant]
     Route: 065
  11. METHYLPREDNISOLONE [Concomitant]
     Indication: ARTHRITIS
     Route: 065
     Dates: start: 20040201, end: 20040201
  12. AMBIEN [Concomitant]
     Route: 065
  13. AVALIDE [Concomitant]
     Route: 065
     Dates: start: 19990801
  14. PREMARIN [Concomitant]
     Indication: MENOPAUSE
     Route: 065
     Dates: start: 19980201
  15. MEDROXYPROGESTERONE ACETATE [Concomitant]
     Route: 065
  16. SULFAMETHOXAZOLE [Concomitant]
     Route: 065
  17. COMBIVENT [Concomitant]
     Route: 065
  18. WELLBUTRIN [Concomitant]
     Route: 065
  19. ISOSORBIDE [Concomitant]
     Route: 065
  20. AVELOX [Concomitant]
     Route: 065
  21. CLINDAMYCIN [Concomitant]
     Route: 065
  22. FLONASE [Concomitant]
     Route: 065
  23. ACIPHEX [Concomitant]
     Route: 065
  24. PREVACID [Concomitant]
     Route: 065
  25. PRAVACHOL [Concomitant]
     Indication: HYPERTENSION
     Route: 065
     Dates: start: 20040201, end: 20040501
  26. BEXTRA [Concomitant]
     Route: 065
     Dates: start: 20021001
  27. MICROZIDE [Concomitant]
     Indication: HYPERTENSION
     Route: 065
     Dates: start: 19980701
  28. CELEBREX [Concomitant]
     Route: 065
     Dates: start: 19991001, end: 20011101
  29. NITROGLYCERIN [Concomitant]
     Route: 065

REACTIONS (23)
  - ABDOMINAL PAIN UPPER [None]
  - ANAEMIA [None]
  - ARTERIAL OCCLUSIVE DISEASE [None]
  - BLOOD CHOLESTEROL INCREASED [None]
  - BURSITIS [None]
  - CHEST PAIN [None]
  - CORONARY ARTERY DISEASE [None]
  - DEPRESSED MOOD [None]
  - DIARRHOEA [None]
  - DRUG INEFFECTIVE [None]
  - DYSFUNCTIONAL UTERINE BLEEDING [None]
  - EMOTIONAL DISTRESS [None]
  - GASTROOESOPHAGEAL REFLUX DISEASE [None]
  - INFLUENZA LIKE ILLNESS [None]
  - LEUKOCYTOSIS [None]
  - MUSCLE SPASMS [None]
  - MYOCARDIAL INFARCTION [None]
  - PARAESTHESIA [None]
  - PHARYNGOLARYNGEAL PAIN [None]
  - PRESCRIBED OVERDOSE [None]
  - STRESS INCONTINENCE [None]
  - TRIGGER FINGER [None]
  - URINARY TRACT INFECTION [None]
